FAERS Safety Report 20733282 (Version 3)
Quarter: 2022Q2

REPORT INFORMATION
  Report Type: Report from Study
  Country: JP (occurrence: JP)
  Receive Date: 20220421
  Receipt Date: 20220523
  Transmission Date: 20220721
  Serious: Yes (Hospitalization, Other)
  Sender: FDA-Public Use
  Company Number: JP-ONO-2022JP001321

PATIENT
  Age: 58 Year
  Sex: Male
  Weight: 71.3 kg

DRUGS (25)
  1. NIVOLUMAB [Suspect]
     Active Substance: NIVOLUMAB
     Indication: Oesophageal carcinoma
     Route: 041
     Dates: start: 20211201, end: 20220112
  2. FLUOROURACIL [Suspect]
     Active Substance: FLUOROURACIL
     Indication: Oesophageal carcinoma
     Route: 041
     Dates: start: 20211201, end: 20220113
  3. FLUOROURACIL [Suspect]
     Active Substance: FLUOROURACIL
  4. DOCETAXEL [Suspect]
     Active Substance: DOCETAXEL
     Indication: Oesophageal carcinoma
     Route: 042
     Dates: start: 20211201, end: 20220112
  5. DOCETAXEL [Suspect]
     Active Substance: DOCETAXEL
  6. ESOMEPRAZOLE SODIUM [Suspect]
     Active Substance: ESOMEPRAZOLE SODIUM
     Indication: Gastritis prophylaxis
     Dosage: 20 MG, EVERYDAY
     Route: 048
     Dates: start: 20220113
  7. SULFAMETHOXAZOLE [Suspect]
     Active Substance: SULFAMETHOXAZOLE
     Indication: Infection prophylaxis
     Dosage: 1 DF, EVERYDAY
     Route: 048
     Dates: start: 20211201
  8. LEUCOVORIN CALCIUM [Suspect]
     Active Substance: LEUCOVORIN CALCIUM
     Indication: Oesophageal carcinoma
     Route: 042
     Dates: start: 20211201, end: 20220112
  9. OXALIPLATIN [Suspect]
     Active Substance: OXALIPLATIN
     Indication: Oesophageal carcinoma
     Route: 042
     Dates: start: 20211201, end: 20220112
  10. SOLDEM 3A [Concomitant]
     Active Substance: CARBOHYDRATES\POTASSIUM CHLORIDE\SODIUM CHLORIDE\SODIUM LACTATE
     Indication: Oesophageal carcinoma
     Dosage: 500 MILLILITER, 24-HOUR INFUSION
     Route: 041
     Dates: start: 20211201
  11. SOLDEM 3A [Concomitant]
     Active Substance: CARBOHYDRATES\POTASSIUM CHLORIDE\SODIUM CHLORIDE\SODIUM LACTATE
  12. SOLDEM 3A [Concomitant]
     Active Substance: CARBOHYDRATES\POTASSIUM CHLORIDE\SODIUM CHLORIDE\SODIUM LACTATE
  13. SOLDEM 3A [Concomitant]
     Active Substance: CARBOHYDRATES\POTASSIUM CHLORIDE\SODIUM CHLORIDE\SODIUM LACTATE
  14. ACETAMINOPHEN [Concomitant]
     Active Substance: ACETAMINOPHEN
     Indication: Pyrexia
     Dosage: 750 MG, PRN
     Route: 042
     Dates: start: 202201
  15. ACETAMINOPHEN [Concomitant]
     Active Substance: ACETAMINOPHEN
  16. ACETAMINOPHEN [Concomitant]
     Active Substance: ACETAMINOPHEN
  17. ACETAMINOPHEN [Concomitant]
     Active Substance: ACETAMINOPHEN
  18. OLANZAPINE [Concomitant]
     Active Substance: OLANZAPINE
     Indication: Prophylaxis of nausea and vomiting
     Dosage: 5 MG, PRN
     Route: 048
     Dates: start: 20211202
  19. OLANZAPINE [Concomitant]
     Active Substance: OLANZAPINE
  20. OLANZAPINE [Concomitant]
     Active Substance: OLANZAPINE
  21. OLANZAPINE [Concomitant]
     Active Substance: OLANZAPINE
  22. DECADRON [Concomitant]
     Active Substance: DEXAMETHASONE
     Indication: Prophylaxis of nausea and vomiting
     Dosage: 8 MG, DAY2-3
     Route: 048
     Dates: start: 20211202
  23. CALONAL [Concomitant]
     Active Substance: ACETAMINOPHEN
     Indication: Pyrexia
     Dosage: 400 MG WAS USED TWICE
     Route: 065
     Dates: start: 20211230
  24. CALONAL [Concomitant]
     Active Substance: ACETAMINOPHEN
     Dosage: 400 MILLIGRAM
     Route: 065
     Dates: start: 20220112
  25. CALCIUM CHLORIDE ANHYDROUS\POTASSIUM CHLORIDE\SODIUM CHLORIDE\SODIUM L [Concomitant]
     Active Substance: CALCIUM CHLORIDE ANHYDROUS\POTASSIUM CHLORIDE\SODIUM CHLORIDE\SODIUM LACTATE
     Indication: Pyrexia
     Dosage: 500 MILLILITER
     Route: 065
     Dates: start: 202201

REACTIONS (2)
  - Drug-induced liver injury [Recovered/Resolved]
  - Mucosal inflammation [Recovered/Resolved]

NARRATIVE: CASE EVENT DATE: 20220113
